FAERS Safety Report 9348220 (Version 5)
Quarter: 2014Q3

REPORT INFORMATION
  Report Type: Spontaneous
  Country: US (occurrence: US)
  Receive Date: 20130614
  Receipt Date: 20140701
  Transmission Date: 20150326
  Serious: Yes (Hospitalization)
  Sender: FDA-Public Use
  Company Number: US-BAYER-2013-071960

PATIENT
  Age: 21 Year
  Sex: Female
  Weight: 58.96 kg

DRUGS (4)
  1. YASMIN [Suspect]
     Active Substance: DROSPIRENONE\ETHINYL ESTRADIOL
     Dosage: UNK
     Dates: start: 200304, end: 200307
  2. YAZ [Suspect]
     Active Substance: DROSPIRENONE\ETHINYL ESTRADIOL
     Dosage: UNK
     Dates: start: 200304, end: 200307
  3. NAPROSYN [Concomitant]
     Active Substance: NAPROXEN
     Indication: CHEST PAIN
     Dosage: UNK
     Route: 048
     Dates: start: 20030702
  4. TRIPHASIL [Concomitant]
     Indication: METRORRHAGIA
     Dosage: UNK
     Dates: start: 20030220, end: 20030621

REACTIONS (11)
  - Injury [Recovered/Resolved]
  - Pain [Recovered/Resolved]
  - Pulmonary embolism [Recovered/Resolved]
  - Dyspnoea [Recovered/Resolved]
  - Emotional distress [None]
  - Anxiety [None]
  - Deep vein thrombosis [Recovered/Resolved]
  - General physical health deterioration [Recovered/Resolved]
  - Pain [None]
  - Abdominal pain [None]
  - Pulmonary embolism [Recovered/Resolved]

NARRATIVE: CASE EVENT DATE: 20030703
